FAERS Safety Report 6380174-6 (Version None)
Quarter: 2009Q3

REPORT INFORMATION
  Report Type: 
  Country: None (occurrence: None)
  Receive Date: 20090929
  Receipt Date: 20090917
  Transmission Date: 20100115
  Serious: Yes (Hospitalization, Other)
  Sender: FDA-Public Use
  Company Number: DE-JNJFOC-20080707005

PATIENT
  Age: 44 Year
  Sex: Female
  Weight: 71 kg

DRUGS (6)
  1. REMICADE [Suspect]
     Dosage: TOTAL INFLIXIMAB DOSE ADMINISTERED WAS 600 MG
     Route: 042
     Dates: start: 20040101, end: 20061001
  2. REMICADE [Suspect]
     Indication: RHEUMATOID ARTHRITIS
     Dosage: TOTAL INFLIXIMAB DOSE ADMINISTERED WAS 600 MG
     Route: 042
     Dates: start: 20040101, end: 20061001
  3. AZATHIOPRINE [Concomitant]
     Indication: RHEUMATOID ARTHRITIS
  4. DICLOFENAC [Concomitant]
  5. COTRIM [Concomitant]
  6. FERROSANOL [Concomitant]
     Indication: IRON DEFICIENCY ANAEMIA

REACTIONS (2)
  - LYMPH NODE TUBERCULOSIS [None]
  - PULMONARY TUBERCULOSIS [None]
